FAERS Safety Report 7684356-2 (Version None)
Quarter: 2011Q3

REPORT INFORMATION
  Report Type: 
  Country: None (occurrence: None)
  Receive Date: 20110816
  Receipt Date: 20110811
  Transmission Date: 20111222
  Serious: Yes (Hospitalization)
  Sender: FDA-Public Use
  Company Number: JP-BRISTOL-MYERS SQUIBB COMPANY-15947245

PATIENT
  Age: 79 Year
  Sex: Female
  Weight: 48 kg

DRUGS (11)
  1. ORENCIA [Suspect]
     Indication: RHEUMATOID ARTHRITIS
     Dosage: ON 14JUN11,29JUN11 AND 13JUL11.
     Route: 041
     Dates: start: 20110614
  2. METHOTREXATE [Suspect]
     Dosage: INTERRP ON 29JUL11
     Dates: start: 20110713
  3. RABEPRAZOLE SODIUM [Concomitant]
  4. AMLODIPINE [Concomitant]
  5. CANDESARTAN CILEXETIL [Concomitant]
  6. ALENDRONATE SODIUM [Concomitant]
  7. MUCOSTA [Concomitant]
  8. FOLIC ACID [Concomitant]
     Indication: PROPHYLAXIS
  9. PRAVASTATIN SODIUM [Concomitant]
  10. ULCERLMIN [Concomitant]
  11. LOXOPROFEN [Concomitant]
     Indication: RHEUMATOID ARTHRITIS

REACTIONS (1)
  - INTERSTITIAL LUNG DISEASE [None]
